FAERS Safety Report 5115872-5 (Version None)
Quarter: 2006Q3

REPORT INFORMATION
  Report Type: 
  Country: None (occurrence: None)
  Receive Date: 20060926
  Receipt Date: 20060926
  Transmission Date: 20061208
  Serious: Yes (Hospitalization)
  Sender: FDA-Public Use
  Company Number: None

PATIENT
  Age: 60 Year
  Sex: Male
  Weight: 66.6788 kg

DRUGS (2)
  1. DOCETAXEL [Suspect]
  2. FLUOROURACIL [Suspect]

REACTIONS (4)
  - DYSPHAGIA [None]
  - DYSPNOEA [None]
  - OEDEMA [None]
  - TONSILLAR DISORDER [None]
